FAERS Safety Report 20062119 (Version 2)
Quarter: 2022Q1

REPORT INFORMATION
  Report Type: Spontaneous
  Country: IN (occurrence: IN)
  Receive Date: 20211112
  Receipt Date: 20220201
  Transmission Date: 20220423
  Serious: Yes (Other)
  Sender: FDA-Public Use
  Company Number: IN-PFIZER INC-2018046509

PATIENT
  Age: 69 Year
  Sex: Male

DRUGS (3)
  1. SUTENT [Suspect]
     Active Substance: SUNITINIB MALATE
     Indication: Metastatic renal cell carcinoma
     Dosage: 25 MG, CYCLIC (ONCE A DAY, 2WEEKS ON AND 1 WEEK OFF)
     Route: 048
     Dates: start: 20151121
  2. SUTENT [Suspect]
     Active Substance: SUNITINIB MALATE
     Dosage: 50 MG, 1X/DAY
     Route: 048
     Dates: start: 20160119
  3. SUTENT [Suspect]
     Active Substance: SUNITINIB MALATE
     Dosage: 14 DAYS AND THEN GAP OF 7 DAYS

REACTIONS (15)
  - Nephrocalcinosis [Unknown]
  - COVID-19 [Recovered/Resolved]
  - Viral infection [Unknown]
  - Nasopharyngitis [Unknown]
  - Malaise [Unknown]
  - Renal function test abnormal [Unknown]
  - Neoplasm progression [Unknown]
  - Sinusitis [Unknown]
  - Hepatic cyst [Unknown]
  - Cholelithiasis [Unknown]
  - Renal cyst [Unknown]
  - Degenerative bone disease [Unknown]
  - Fungal infection [Unknown]
  - Blood pressure abnormal [Unknown]
  - Off label use [Unknown]

NARRATIVE: CASE EVENT DATE: 20181101
